FAERS Safety Report 16315786 (Version 2)
Quarter: 2019Q2

REPORT INFORMATION
  Report Type: Spontaneous
  Country: JP (occurrence: JP)
  Receive Date: 20190515
  Receipt Date: 20190608
  Transmission Date: 20190711
  Serious: Yes (Hospitalization, Other)
  Sender: FDA-Public Use
  Company Number: PHJP2019JP005089

PATIENT
  Age: 57 Year
  Sex: Female

DRUGS (1)
  1. AFINITOR [Suspect]
     Active Substance: EVEROLIMUS
     Indication: METASTATIC CARCINOID TUMOUR
     Dosage: 10 MG, QD
     Route: 048
     Dates: start: 20180808, end: 20181007

REACTIONS (8)
  - Hallucination, olfactory [Unknown]
  - Hypokalaemia [Unknown]
  - Hallucination, auditory [Unknown]
  - Metastatic carcinoid tumour [Unknown]
  - Ectopic ACTH syndrome [Unknown]
  - Malignant neoplasm progression [Unknown]
  - Persecutory delusion [Unknown]
  - Product use in unapproved indication [Unknown]

NARRATIVE: CASE EVENT DATE: 201810
